FAERS Safety Report 6414541-9 (Version None)
Quarter: 2009Q4

REPORT INFORMATION
  Report Type: 
  Country: None (occurrence: None)
  Receive Date: 20091026
  Receipt Date: 20091020
  Transmission Date: 20100525
  Serious: Yes (Other)
  Sender: FDA-Public Use
  Company Number: US-SANOFI-SYNTHELABO-A03200904843

PATIENT
  Age: 63 Year
  Sex: Male
  Weight: 122.9 kg

DRUGS (7)
  1. UNSPECIFIED MEDICATIONS [Concomitant]
     Dosage: UNK
     Route: 065
  2. LOVASTATIN [Concomitant]
     Indication: DRUG USE FOR UNKNOWN INDICATION
     Dosage: UNK
     Route: 065
  3. COUMADIN [Concomitant]
     Indication: ATRIAL FIBRILLATION
     Dosage: UNK
     Route: 065
  4. COUMADIN [Concomitant]
     Indication: MITRAL VALVE REPLACEMENT
     Dosage: UNK
     Route: 065
  5. METOPROLOL [Concomitant]
     Indication: DRUG USE FOR UNKNOWN INDICATION
     Dosage: UNK
     Route: 065
  6. AMIODARONE [Concomitant]
     Indication: ATRIAL FIBRILLATION
     Dosage: UNK
     Route: 065
  7. MULTAQ [Suspect]
     Indication: ATRIAL FIBRILLATION
     Route: 048
     Dates: start: 20090911, end: 20091001

REACTIONS (3)
  - DYSPNOEA [None]
  - GENERALISED OEDEMA [None]
  - WEIGHT INCREASED [None]
